FAERS Safety Report 25388646 (Version 1)
Quarter: 2025Q2

REPORT INFORMATION
  Report Type: Spontaneous
  Country: ES (occurrence: ES)
  Receive Date: 20250603
  Receipt Date: 20250603
  Transmission Date: 20250717
  Serious: Yes (Hospitalization)
  Sender: ACCORD
  Company Number: None

PATIENT
  Age: 66 Year
  Sex: Male
  Weight: 84 kg

DRUGS (6)
  1. TRAZODONE HYDROCHLORIDE [Suspect]
     Active Substance: TRAZODONE HYDROCHLORIDE
     Indication: Product used for unknown indication
     Dosage: 1/24H
     Dates: start: 20201119
  2. ARCOXIA [Suspect]
     Active Substance: ETORICOXIB
     Indication: Nasopharyngitis
     Dosage: STRENGTH: 30 MG, ONE EVERY 8 HOURS, 28 TABLETS
     Dates: start: 20241117, end: 20241120
  3. TELMISARTAN [Suspect]
     Active Substance: TELMISARTAN
     Indication: Product used for unknown indication
     Dosage: 1/24H
     Dates: start: 20240617
  4. BISOPROLOL [Suspect]
     Active Substance: BISOPROLOL
     Indication: Product used for unknown indication
     Dosage: 1/24H
     Dates: start: 20211110
  5. CARBOCYSTEINE\PROMETHAZINE HYDROCHLORIDE [Suspect]
     Active Substance: CARBOCYSTEINE\PROMETHAZINE HYDROCHLORIDE
     Indication: Product used for unknown indication
     Dosage: 5/8H
     Dates: start: 20241117
  6. TERAZOSIN [Concomitant]
     Active Substance: TERAZOSIN HYDROCHLORIDE
     Dosage: 1/24H
     Dates: start: 20190617

REACTIONS (3)
  - Abdominal pain [Recovered/Resolved]
  - Malaise [Recovered/Resolved]
  - Melaena [Recovered/Resolved]

NARRATIVE: CASE EVENT DATE: 20241117
